FAERS Safety Report 7210237-4 (Version None)
Quarter: 2011Q1

REPORT INFORMATION
  Report Type: 
  Country: None (occurrence: None)
  Receive Date: 20110105
  Receipt Date: 20101229
  Transmission Date: 20110831
  Serious: Yes (Other)
  Sender: FDA-Public Use
  Company Number: US-NOVOPROD-320803

PATIENT
  Sex: Female

DRUGS (5)
  1. VICTOZA [Suspect]
     Indication: WEIGHT DECREASED
     Dosage: 0.6 MG, QD FOR 1 WEEK
     Route: 058
     Dates: start: 20100701, end: 20100701
  2. VICTOZA [Suspect]
     Dosage: 1.8 MG, QD
     Route: 058
     Dates: start: 20100701, end: 20101118
  3. SYNTHROID [Concomitant]
     Indication: HYPOTHYROIDISM
     Dosage: 0.075 MG, QD
     Route: 048
  4. THYROID TAB [Concomitant]
     Indication: HYPOTHYROIDISM
  5. VICTOZA [Suspect]
     Indication: BLOOD GLUCOSE ABNORMAL
     Dosage: 1.2 MG, QD FOR 1 WEEK
     Route: 058
     Dates: start: 20100701, end: 20100701

REACTIONS (3)
  - HEPATIC NEOPLASM [None]
  - PANCREATITIS [None]
  - CHOLELITHIASIS [None]
